FAERS Safety Report 4602276-4 (Version None)
Quarter: 2005Q1

REPORT INFORMATION
  Report Type: 
  Country: None (occurrence: None)
  Receive Date: 20050215
  Receipt Date: 20041018
  Transmission Date: 20050727
  Serious: Yes (Hospitalization)
  Sender: FDA-Public Use
  Company Number: 381292

PATIENT
  Age: 57 Year
  Sex: Female
  Weight: 63.5 kg

DRUGS (3)
  1. PEGASYS [Suspect]
     Indication: HEPATITIS C
     Dosage: 135 MCG 1 PER WEEK SUBCUTANEOUS
     Route: 058
     Dates: start: 20040809, end: 20040921
  2. COPEGUS [Suspect]
     Indication: HEPATITIS C
     Dosage: ORAL
     Route: 048
     Dates: start: 20040809, end: 20040921
  3. EFFEXOR [Concomitant]

REACTIONS (9)
  - ARTHRALGIA [None]
  - CONTUSION [None]
  - DEPRESSION [None]
  - INFLUENZA LIKE ILLNESS [None]
  - NAUSEA [None]
  - NEUTROPENIA [None]
  - PLATELET COUNT DECREASED [None]
  - PRURITUS [None]
  - WEIGHT DECREASED [None]
